FAERS Safety Report 9949096 (Version 1)
Quarter: 2014Q1

REPORT INFORMATION
  Report Type: Spontaneous
  Country: US (occurrence: US)
  Receive Date: 20140304
  Receipt Date: 20140304
  Transmission Date: 20141002
  Serious: No
  Sender: FDA-Public Use
  Company Number: US-PFIZER INC-2014060625

PATIENT
  Age: 52 Year
  Sex: Female

DRUGS (10)
  1. CELEBREX [Suspect]
     Dosage: UNK
  2. EFFEXOR XR [Suspect]
     Dosage: UNK
  3. IBUPROFEN [Suspect]
     Dosage: UNK
  4. NITROGLYCERIN [Suspect]
     Dosage: UNK
  5. BENADRYL [Suspect]
     Dosage: UNK
     Route: 048
  6. BENADRYL [Suspect]
     Dosage: UNK
     Route: 061
  7. DECADRON [Suspect]
     Dosage: UNK
  8. DHEA [Suspect]
     Dosage: UNK
  9. ZANTAC [Suspect]
     Dosage: UNK
  10. ZOMIG [Suspect]
     Dosage: UNK (NASAL SPRAY)

REACTIONS (1)
  - Drug hypersensitivity [Unknown]
